FAERS Safety Report 24651053 (Version 5)
Quarter: 2025Q2

REPORT INFORMATION
  Report Type: Report from Study
  Country: CA (occurrence: CA)
  Receive Date: 20241122
  Receipt Date: 20250417
  Transmission Date: 20250717
  Serious: Yes (Hospitalization, Other)
  Sender: TAKEDA
  Company Number: CA-TAKEDA-2024TUS115331

PATIENT
  Age: 86 Year
  Sex: Male

DRUGS (6)
  1. VEDOLIZUMAB [Suspect]
     Active Substance: VEDOLIZUMAB
     Indication: Colitis ulcerative
  2. VEDOLIZUMAB [Suspect]
     Active Substance: VEDOLIZUMAB
  3. VEDOLIZUMAB [Suspect]
     Active Substance: VEDOLIZUMAB
     Indication: Colitis ulcerative
     Dosage: 108 MILLIGRAM, Q2WEEKS
     Dates: start: 20250313
  4. ISONIAZID [Concomitant]
     Active Substance: ISONIAZID
  5. VITAMIN B12 [Concomitant]
     Active Substance: CYANOCOBALAMIN
  6. MESALAMINE [Concomitant]
     Active Substance: MESALAMINE

REACTIONS (9)
  - Urinary retention [Not Recovered/Not Resolved]
  - Delirium [Unknown]
  - Confusional state [Not Recovered/Not Resolved]
  - Mobility decreased [Not Recovered/Not Resolved]
  - Dementia Alzheimer^s type [Unknown]
  - COVID-19 [Unknown]
  - Behaviour disorder [Unknown]
  - Anal incontinence [Unknown]
  - Product dose omission issue [Unknown]

NARRATIVE: CASE EVENT DATE: 20241113
